FAERS Safety Report 4710664-0 (Version None)
Quarter: 2005Q3

REPORT INFORMATION
  Report Type: 
  Country: None (occurrence: None)
  Receive Date: 20050711
  Receipt Date: 20050217
  Transmission Date: 20060218
  Serious: Yes (Other)
  Sender: FDA-Public Use
  Company Number: 2005UW02750

PATIENT
  Age: 50 Year
  Sex: Male
  Weight: 90.9 kg

DRUGS (1)
  1. CRESTOR [Suspect]
     Indication: BLOOD CHOLESTEROL INCREASED
     Route: 048
     Dates: start: 20041101, end: 20041120

REACTIONS (4)
  - AGGRESSION [None]
  - ARTHRALGIA [None]
  - MYALGIA [None]
  - PSYCHOTIC DISORDER [None]
